FAERS Safety Report 7718862-9 (Version None)
Quarter: 2011Q3

REPORT INFORMATION
  Report Type: 
  Country: None (occurrence: None)
  Receive Date: 20110830
  Receipt Date: 20110819
  Transmission Date: 20111222
  Serious: Yes (Other)
  Sender: FDA-Public Use
  Company Number: US-BAYER-201029003NA

PATIENT
  Sex: Female

DRUGS (1)
  1. YAZ [Suspect]
     Indication: ACNE
     Dosage: UNK
     Dates: start: 20070401, end: 20100201

REACTIONS (3)
  - GALLBLADDER DISORDER [None]
  - INJURY [None]
  - PAIN [None]
